APPROVED DRUG PRODUCT: MONTELUKAST SODIUM
Active Ingredient: MONTELUKAST SODIUM
Strength: EQ 4MG BASE
Dosage Form/Route: TABLET, CHEWABLE;ORAL
Application: A209011 | Product #001 | TE Code: AB
Applicant: RISING PHARMA HOLDINGS INC
Approved: Apr 18, 2017 | RLD: No | RS: No | Type: RX